FAERS Safety Report 26089880 (Version 1)
Quarter: 2025Q4

REPORT INFORMATION
  Report Type: Spontaneous
  Country: US (occurrence: US)
  Receive Date: 20251125
  Receipt Date: 20251125
  Transmission Date: 20260118
  Serious: No
  Sender: STRIDES
  Company Number: US-STRIDES ARCOLAB LIMITED-2025SP011910

PATIENT
  Sex: Male

DRUGS (1)
  1. MAGNESIUM\POTASSIUM\SODIUM [Suspect]
     Active Substance: MAGNESIUM\POTASSIUM\SODIUM
     Indication: Colonoscopy
     Dosage: ORAL SOLUTION
     Route: 065

REACTIONS (2)
  - Vomiting [Unknown]
  - Nausea [Unknown]
